FAERS Safety Report 12175053 (Version 1)
Quarter: 2016Q1

REPORT INFORMATION
  Report Type: Spontaneous
  Country: US (occurrence: US)
  Receive Date: 20160314
  Receipt Date: 20160314
  Transmission Date: 20160526
  Serious: Yes (Other)
  Sender: FDA-Public Use
  Company Number: US-BEH-2015048436

PATIENT
  Sex: Female

DRUGS (1)
  1. RIASTAP [Suspect]
     Active Substance: FIBRINOGEN HUMAN

REACTIONS (4)
  - Anaphylactic reaction [Unknown]
  - Erythema [Unknown]
  - Chills [Unknown]
  - Hypotension [Unknown]
